FAERS Safety Report 17501140 (Version 2)
Quarter: 2020Q1

REPORT INFORMATION
  Report Type: Spontaneous
  Country: JP (occurrence: JP)
  Receive Date: 20200305
  Receipt Date: 20200323
  Transmission Date: 20200409
  Serious: Yes (Hospitalization)
  Sender: FDA-Public Use
  Company Number: JP-MYLANLABS-2020M1021362

PATIENT
  Age: 3 Month
  Sex: Female
  Weight: 4.66 kg

DRUGS (2)
  1. OLIVES [Suspect]
     Active Substance: LIDOCAINE HYDROCHLORIDE
     Indication: EARLY INFANTILE EPILEPTIC ENCEPHALOPATHY WITH BURST-SUPPRESSION
     Dosage: CONTINUOUS IV INFUSION FROM THE AGE OF 3DAYS
     Route: 065
  2. OLIVES [Suspect]
     Active Substance: LIDOCAINE HYDROCHLORIDE
     Dosage: CONTINUOUS INTRAVENOUS INJECTION 0.3-2.0 MG/KG/HR
     Route: 065

REACTIONS (3)
  - Mood altered [Recovering/Resolving]
  - Hyperhidrosis [Recovering/Resolving]
  - Hyperuricaemia [Recovering/Resolving]
